FAERS Safety Report 18925881 (Version 2)
Quarter: 2021Q1

REPORT INFORMATION
  Report Type: Spontaneous
  Country: US (occurrence: US)
  Receive Date: 20210223
  Receipt Date: 20210305
  Transmission Date: 20210420
  Serious: No
  Sender: FDA-Public Use
  Company Number: US-BLUEPRINT MEDICINES CORPORATION-SP-US-2021-000145

PATIENT
  Sex: Female
  Weight: 70.82 kg

DRUGS (1)
  1. GAVRETO [Suspect]
     Active Substance: PRALSETINIB
     Indication: THYROID CANCER
     Route: 048
     Dates: start: 20210119

REACTIONS (1)
  - Hypertension [Not Recovered/Not Resolved]
